FAERS Safety Report 5794550-3 (Version None)
Quarter: 2008Q2

REPORT INFORMATION
  Report Type: 
  Country: None (occurrence: None)
  Receive Date: 20080625
  Receipt Date: 20080616
  Transmission Date: 20081010
  Serious: Yes (Life-Threatening, Hospitalization)
  Sender: FDA-Public Use
  Company Number: 2008-02002

PATIENT
  Age: 52 Year
  Sex: Female
  Weight: 74 kg

DRUGS (12)
  1. VELCADE [Suspect]
     Indication: MULTIPLE MYELOMA
     Dosage: 1 MG/M2, INTRAVENOUS
     Route: 042
     Dates: start: 20071026, end: 20080509
  2. THALIDOMIDE [Suspect]
     Indication: MULTIPLE MYELOMA
     Dosage: 100 MG, ORAL
     Route: 048
     Dates: start: 20071106, end: 20080601
  3. DEXAMETHASONE TAB [Suspect]
     Indication: MULTIPLE MYELOMA
     Dosage: 40 MG, ORAL
     Route: 048
     Dates: start: 20071026, end: 20080512
  4. OXAZEPAM [Concomitant]
  5. VALTREX [Concomitant]
  6. PANTOPRAZOLE SODIUM [Concomitant]
  7. ATORVASTATIN CALCIUM [Concomitant]
  8. BEZALIP (BEZAFIBRATE) [Concomitant]
  9. MARCUMAR [Concomitant]
  10. GABAPENTIN [Concomitant]
  11. OXYCONTIN [Concomitant]
  12. MORPHINE SULFATE [Concomitant]

REACTIONS (3)
  - HYPERTRIGLYCERIDAEMIA [None]
  - PULMONARY EMBOLISM [None]
  - RESPIRATORY TRACT INFECTION [None]
